FAERS Safety Report 11145687 (Version 1)
Quarter: 2015Q2

REPORT INFORMATION
  Report Type: Spontaneous
  Country: GB (occurrence: None)
  Receive Date: 20150526
  Receipt Date: 20150526
  Transmission Date: 20150821
  Serious: Yes (Other)
  Sender: FDA-Public Use
  Company Number: None

PATIENT
  Age: 43 Year
  Sex: Female
  Weight: 96 kg

DRUGS (9)
  1. SYMBICORT [Concomitant]
     Active Substance: BUDESONIDE\FORMOTEROL FUMARATE DIHYDRATE
  2. PREGABALIN. [Concomitant]
     Active Substance: PREGABALIN
  3. PARACETAMOL [Concomitant]
     Active Substance: ACETAMINOPHEN
  4. INFLIXIMAB [Suspect]
     Active Substance: INFLIXIMAB
     Indication: CROHN^S DISEASE
     Dosage: INTO A VEIN; PER KG-STANDARD GUIDANCE
     Dates: start: 20091110, end: 20150130
  5. CERTIRIZINE [Concomitant]
  6. CALCICHEW [Concomitant]
     Active Substance: CALCIUM CARBONATE
  7. FENTANYL. [Concomitant]
     Active Substance: FENTANYL
  8. VITABIOTICS [Concomitant]
  9. MILK THISTLE [Concomitant]
     Active Substance: MILK THISTLE

REACTIONS (3)
  - Breast cancer [None]
  - Oestrogen receptor assay positive [None]
  - Fatigue [None]

NARRATIVE: CASE EVENT DATE: 20150306
